FAERS Safety Report 8609684 (Version 2)
Quarter: 2014Q1

REPORT INFORMATION
  Report Type: Spontaneous
  Country: US (occurrence: None)
  Receive Date: 20120323
  Receipt Date: 20130305
  Transmission Date: 20141002
  Serious: Yes (Other)
  Sender: FDA-Public Use
  Company Number: 163-21880-11121565

PATIENT
  Age: 90 Year
  Sex: Male
  Weight: 86.18 kg

DRUGS (9)
  1. REVLIMID (LENALIDOMIDE) (25 MILLIGRAM, CAPSULES) [Suspect]
     Indication: PLASMA CELL MYELOMA
     Dosage: 25 MG, 1 IN 1 D, PO
     Route: 048
     Dates: start: 20110621
  2. ASPIRIN (ACETYLSALICYLIC ACID) (UNKNOWN) (ACETYLSALICYLIC ACID) [Concomitant]
  3. HYDROCODONE (HYDROCODONE) (UNKNOWN) [Concomitant]
  4. SENOKOT (SENNA FRUIT) (UNKNOWN) [Concomitant]
  5. DEXAMETHASONE (DEXAMETHASONE) (UNKNOWN) [Concomitant]
  6. COUMADIN (WARFARIN SODIUM) (UNKNOWN) [Concomitant]
  7. PROCIT (ERYTHROPOIETIN) (INJECTION) [Concomitant]
  8. ZOLEDRONIC ACID (ZOLEDRONIC ACID) (UNKNOWN) [Concomitant]
  9. WARFARIN  (WARFARIN) (UNKNOWN) [Concomitant]

REACTIONS (4)
  - Thrombosis [None]
  - Deep vein thrombosis [None]
  - Upper respiratory tract infection [None]
  - Rash [None]
